FAERS Safety Report 25653971 (Version 2)
Quarter: 2025Q3

REPORT INFORMATION
  Report Type: Spontaneous
  Country: US (occurrence: US)
  Receive Date: 20250807
  Receipt Date: 20250826
  Transmission Date: 20251020
  Serious: Yes (Hospitalization)
  Sender: ROCHE
  Company Number: US-ROCHE-10000353299

PATIENT
  Sex: Male

DRUGS (1)
  1. ACTEMRA ACTPEN [Suspect]
     Active Substance: TOCILIZUMAB
     Indication: Systemic sclerosis pulmonary
     Dosage: STRENGTH: 162MG/09M
     Route: 058
     Dates: start: 202505

REACTIONS (3)
  - Infection [Unknown]
  - Affective disorder [Unknown]
  - Weight abnormal [Unknown]
